FAERS Safety Report 18047098 (Version 1)
Quarter: 2020Q3

REPORT INFORMATION
  Report Type: Spontaneous
  Country: US (occurrence: US)
  Receive Date: 20200720
  Receipt Date: 20200720
  Transmission Date: 20201103
  Serious: No
  Sender: FDA-Public Use
  Company Number: US-ROCHE-2474640

PATIENT
  Sex: Female
  Weight: 136.2 kg

DRUGS (3)
  1. CARBOPLATIN. [Concomitant]
     Active Substance: CARBOPLATIN
     Indication: SMALL CELL LUNG CANCER
     Dosage: 10 SESSIONS OF 5 DAYS A WEEK FOR 2 WEEKS ;ONGOING: NO
     Dates: start: 201904, end: 201907
  2. TECENTRIQ [Suspect]
     Active Substance: ATEZOLIZUMAB
     Indication: SMALL CELL LUNG CANCER
     Dosage: ONGOING: NO
     Route: 042
     Dates: start: 201905, end: 2019
  3. ETOPOSIDE. [Concomitant]
     Active Substance: ETOPOSIDE
     Indication: SMALL CELL LUNG CANCER
     Dates: start: 201903, end: 201907

REACTIONS (2)
  - Drug ineffective [Unknown]
  - No adverse event [Unknown]
